FAERS Safety Report 23721641 (Version 4)
Quarter: 2024Q3

REPORT INFORMATION
  Report Type: Spontaneous
  Country: US (occurrence: US)
  Receive Date: 20240409
  Receipt Date: 20240813
  Transmission Date: 20241017
  Serious: Yes (Other)
  Sender: ORGANON
  Company Number: US-ORGANON-O2404USA000914

PATIENT
  Age: 24 Year
  Sex: Female
  Weight: 65.3 kg

DRUGS (1)
  1. NEXPLANON [Suspect]
     Active Substance: ETONOGESTREL
     Indication: Contraception
     Dosage: 68 MG, 1 IMPLANT IN ARM
     Route: 058
     Dates: start: 201508, end: 20240726

REACTIONS (10)
  - Pregnancy with implant contraceptive [Recovered/Resolved]
  - General anaesthesia [Unknown]
  - Device dislocation [Recovered/Resolved]
  - Unintended pregnancy [Recovered/Resolved]
  - Device issue [Recovered/Resolved]
  - Complication of device removal [Recovered/Resolved]
  - Device placement issue [Recovered/Resolved]
  - Complication associated with device [Recovered/Resolved]
  - Complication of delivery [Recovered/Resolved]
  - Incorrect product administration duration [Unknown]

NARRATIVE: CASE EVENT DATE: 20150801
